FAERS Safety Report 10236458 (Version 2)
Quarter: 2014Q3

REPORT INFORMATION
  Report Type: Report from Study
  Country: CA (occurrence: CA)
  Receive Date: 20140613
  Receipt Date: 20140714
  Transmission Date: 20150326
  Serious: Yes (Other)
  Sender: FDA-Public Use
  Company Number: CA-ABBVIE-14K-028-1246021-00

PATIENT
  Sex: Male
  Weight: 79.45 kg

DRUGS (8)
  1. KALETRA [Suspect]
     Active Substance: LOPINAVIR\RITONAVIR
     Indication: HIV INFECTION
     Dosage: 200/50 MG
     Route: 048
     Dates: start: 20130730
  2. AMPHETAMINE [Suspect]
     Active Substance: AMPHETAMINE
     Indication: PRODUCT USED FOR UNKNOWN INDICATION
  3. PANTOLOC [Concomitant]
     Active Substance: PANTOPRAZOLE SODIUM
     Indication: PRODUCT USED FOR UNKNOWN INDICATION
     Route: 048
  4. TRUVADA [Concomitant]
     Active Substance: EMTRICITABINE\TENOFOVIR DISOPROXIL FUMARATE
     Indication: HIV INFECTION
     Dosage: 200/300 MG
     Route: 048
     Dates: start: 20130730
  5. TEVA PREGABALIN [Concomitant]
     Active Substance: PREGABALIN
     Indication: HYPOAESTHESIA
     Route: 048
  6. CITALOPRAM [Suspect]
     Active Substance: CITALOPRAM HYDROBROMIDE
     Indication: DEPRESSION
     Route: 048
  7. CRYSTAL METZ [Suspect]
     Active Substance: METHAMPHETAMINE
     Indication: PRODUCT USED FOR UNKNOWN INDICATION
  8. UNKNOWN INJECTION [Suspect]
     Active Substance: UNSPECIFIED INGREDIENT
     Indication: PRODUCT USED FOR UNKNOWN INDICATION

REACTIONS (17)
  - Suicidal ideation [Unknown]
  - Injection site bruising [Unknown]
  - Depression [Recovering/Resolving]
  - Abdominal pain [Unknown]
  - Schizophrenia [Not Recovered/Not Resolved]
  - Sedation [Unknown]
  - Nightmare [Unknown]
  - Crying [Unknown]
  - Nausea [Unknown]
  - Abdominal distension [Unknown]
  - Memory impairment [Unknown]
  - Sensory disturbance [Unknown]
  - Emotional disorder [Unknown]
  - Drug abuse [Unknown]
  - Suspiciousness [Not Recovered/Not Resolved]
  - Psychiatric symptom [Unknown]
  - Mental disorder [Unknown]

NARRATIVE: CASE EVENT DATE: 2014
